FAERS Safety Report 10662624 (Version 1)
Quarter: 2014Q4

REPORT INFORMATION
  Report Type: Spontaneous
  Country: US (occurrence: US)
  Receive Date: 20141218
  Receipt Date: 20141218
  Transmission Date: 20150529
  Serious: Yes (Other)
  Sender: FDA-Public Use
  Company Number: US-SA-2014SA173364

PATIENT
  Age: 70 Year
  Sex: Female

DRUGS (1)
  1. AMBIEN [Suspect]
     Active Substance: ZOLPIDEM TARTRATE
     Dosage: FOR 8 TO 10 YEARS
     Route: 048

REACTIONS (6)
  - Bipolar disorder [Unknown]
  - Somnolence [Unknown]
  - Insomnia [Unknown]
  - Drug dependence [Unknown]
  - Medication error [Unknown]
  - Wrong technique in drug usage process [Unknown]
